FAERS Safety Report 9256966 (Version 1)
Quarter: 2013Q1

REPORT INFORMATION
  Report Type: Spontaneous
  Country: US (occurrence: None)
  Receive Date: 20121210
  Receipt Date: 20121210
  Transmission Date: 20140127
  Serious: Yes (Hospitalization)
  Sender: FDA-Public Use
  Company Number: 1208USA009879

PATIENT
  Sex: Female

DRUGS (1)
  1. ZIOPTAN [Suspect]
     Indication: GLAUCOMA
     Route: 047
     Dates: start: 2012, end: 2012

REACTIONS (2)
  - Headache [None]
  - Exposure during pregnancy [None]
